FAERS Safety Report 6571294-1 (Version None)
Quarter: 2010Q1

REPORT INFORMATION
  Report Type: 
  Country: None (occurrence: None)
  Receive Date: 20100129
  Receipt Date: 20100119
  Transmission Date: 20100710
  Serious: Yes (Death)
  Sender: FDA-Public Use
  Company Number: PERL20100002

PATIENT
  Age: 45 Year
  Sex: Female

DRUGS (6)
  1. PERCOLONE      (OXYCODONE) [Suspect]
     Indication: DRUG USE FOR UNKNOWN INDICATION
  2. PROPRANOLOL (PROPRANOLOL) (UNKNOWN) [Suspect]
     Indication: DRUG USE FOR UNKNOWN INDICATION
  3. DIAZEPAM [Suspect]
     Indication: DRUG USE FOR UNKNOWN INDICATION
  4. NORDIAZEPAM (NORDAZEPAM)(UNKNOWN) [Suspect]
     Indication: DRUG USE FOR UNKNOWN INDICATION
  5. VALPROIC ACID [Suspect]
     Indication: DRUG USE FOR UNKNOWN INDICATION
  6. ZOPLICONE (ZOPICLONE) (UNKNOWN) (ZOPICLONE) [Concomitant]

REACTIONS (2)
  - DEPRESSION [None]
  - MULTIPLE DRUG OVERDOSE [None]
